FAERS Safety Report 5904694-0 (Version None)
Quarter: 2008Q3

REPORT INFORMATION
  Report Type: 
  Country: None (occurrence: None)
  Receive Date: 20080909
  Receipt Date: 20080312
  Transmission Date: 20090109
  Serious: Yes (Hospitalization)
  Sender: FDA-Public Use
  Company Number: 163-20785-08030799

PATIENT
  Age: 68 Year
  Sex: Female

DRUGS (3)
  1. THALOMID [Suspect]
     Indication: MULTIPLE MYELOMA
     Dosage: 100 MG, 2 IN 1 D, ORAL
     Route: 048
     Dates: start: 20080227
  2. DEXAMETHASONE TAB [Concomitant]
  3. PREDNISONE [Concomitant]

REACTIONS (1)
  - PLATELET COUNT DECREASED [None]
